FAERS Safety Report 12774902 (Version 1)
Quarter: 2016Q3

REPORT INFORMATION
  Report Type: Spontaneous
  Country: US (occurrence: US)
  Receive Date: 20160921
  Receipt Date: 20160921
  Transmission Date: 20161109
  Serious: Yes (Life-Threatening, Hospitalization)
  Sender: FDA-Public Use
  Company Number: None

PATIENT
  Age: 80 Year
  Sex: Male
  Weight: 84.1 kg

DRUGS (2)
  1. CHLOROTHIAZIDE. [Suspect]
     Active Substance: CHLOROTHIAZIDE
     Indication: CARDIAC FAILURE CONGESTIVE
     Route: 042
     Dates: start: 20160912, end: 20160912
  2. BUMETANIDE. [Suspect]
     Active Substance: BUMETANIDE
     Indication: CARDIAC FAILURE CONGESTIVE
     Dosage: 1 MG PER HOUR IV
     Route: 042
     Dates: start: 20160912, end: 20160912

REACTIONS (3)
  - Cardiac arrest [None]
  - Palpitations [None]
  - Hypokalaemia [None]

NARRATIVE: CASE EVENT DATE: 20160913
